FAERS Safety Report 9645776 (Version 1)
Quarter: 2013Q4

REPORT INFORMATION
  Report Type: Spontaneous
  Country: US (occurrence: US)
  Receive Date: 20131025
  Receipt Date: 20131025
  Transmission Date: 20140711
  Serious: Yes (Other)
  Sender: FDA-Public Use
  Company Number: CHPA2013US015946

PATIENT
  Age: 76 Year
  Sex: Female

DRUGS (3)
  1. BUCKLEY^S COUGH MIXTURE [Suspect]
     Indication: ASTHMA
     Dosage: UNK UNK, PRN
     Route: 048
  2. BUCKLEY^S COUGH MIXTURE [Suspect]
     Indication: COUGH
  3. BUCKLEY^S COUGH MIXTURE [Suspect]
     Indication: OFF LABEL USE

REACTIONS (7)
  - Hypertension [Not Recovered/Not Resolved]
  - Diabetes mellitus [Not Recovered/Not Resolved]
  - Gastrointestinal haemorrhage [Unknown]
  - Ulcer [Recovered/Resolved]
  - Hepatitis C [Unknown]
  - Therapeutic response unexpected [Unknown]
  - Wrong technique in drug usage process [Unknown]
